FAERS Safety Report 9687678 (Version 1)
Quarter: 2013Q4

REPORT INFORMATION
  Report Type: Spontaneous
  Country: US (occurrence: US)
  Receive Date: 20131114
  Receipt Date: 20131114
  Transmission Date: 20140711
  Serious: No
  Sender: FDA-Public Use
  Company Number: US-PFIZER INC-2013324245

PATIENT
  Age: 54 Year
  Sex: Female
  Weight: 70.3 kg

DRUGS (5)
  1. NEURONTIN [Suspect]
     Indication: NEURALGIA
     Dosage: 100 MG, UNK
  2. NEURONTIN [Suspect]
     Dosage: 200 MG, UNK
  3. GABAPENTIN [Suspect]
     Indication: NEURALGIA
     Dosage: UNK
  4. CELEBREX [Suspect]
     Indication: NEURALGIA
     Dosage: 200 MG, UNK
  5. CELEBREX [Suspect]
     Indication: PAIN

REACTIONS (3)
  - Off label use [Unknown]
  - Insomnia [Unknown]
  - Drug ineffective [Unknown]
